FAERS Safety Report 6863860-0 (Version None)
Quarter: 2010Q3

REPORT INFORMATION
  Report Type: 
  Country: None (occurrence: None)
  Receive Date: 20100721
  Receipt Date: 20080313
  Transmission Date: 20110219
  Serious: No
  Sender: FDA-Public Use
  Company Number: US-PFIZER INC-2008024545

PATIENT
  Sex: Male
  Weight: 88.5 kg

DRUGS (6)
  1. CHANTIX [Suspect]
     Indication: SMOKING CESSATION THERAPY
     Dates: start: 20080107, end: 20080121
  2. NEXIUM [Concomitant]
     Indication: REFLUX OESOPHAGITIS
  3. ACETYLSALICYLIC ACID [Concomitant]
  4. MULTI-VITAMINS [Concomitant]
  5. CHONDROITIN/GLUCOSAMINE [Concomitant]
  6. CIALIS [Concomitant]

REACTIONS (4)
  - ABNORMAL DREAMS [None]
  - FLATULENCE [None]
  - FREQUENT BOWEL MOVEMENTS [None]
  - GASTROOESOPHAGEAL REFLUX DISEASE [None]
